FAERS Safety Report 25416465 (Version 1)
Quarter: 2025Q2

REPORT INFORMATION
  Report Type: Spontaneous
  Country: FR (occurrence: FR)
  Receive Date: 20250610
  Receipt Date: 20250610
  Transmission Date: 20250716
  Serious: Yes (Hospitalization, Other)
  Sender: CELLTRION
  Company Number: FR-AMGEN-FRASP2024250443

PATIENT

DRUGS (1)
  1. BEVACIZUMAB [Suspect]
     Active Substance: BEVACIZUMAB
     Indication: Hereditary haemorrhagic telangiectasia
     Route: 065
     Dates: start: 202211, end: 202406

REACTIONS (6)
  - Acute respiratory failure [Unknown]
  - Ischaemic cholecystitis [Recovered/Resolved]
  - Pneumonia aspiration [Unknown]
  - Epistaxis [Unknown]
  - Drug ineffective for unapproved indication [Unknown]
  - Off label use [Unknown]

NARRATIVE: CASE EVENT DATE: 20221101
